FAERS Safety Report 5915700-1 (Version None)
Quarter: 2008Q4

REPORT INFORMATION
  Report Type: 
  Country: None (occurrence: None)
  Receive Date: 20081010
  Receipt Date: 20081007
  Transmission Date: 20090506
  Serious: Yes (Life-Threatening)
  Sender: FDA-Public Use
  Company Number: JP-ASTRAZENECA-2008AP05347

PATIENT
  Age: 55 Year
  Sex: Male
  Weight: 64 kg

DRUGS (18)
  1. DIPRIVAN [Suspect]
     Indication: SEDATION
     Dosage: 3 ML/HOUR AND THEN INCREASED TO 5 ML/HOUR
     Route: 042
     Dates: start: 20080618, end: 20080618
  2. BLOPRESS [Concomitant]
     Indication: HYPERTENSION
     Route: 048
     Dates: end: 20080617
  3. ASPIRIN [Concomitant]
     Indication: ACUTE MYOCARDIAL INFARCTION
     Dosage: 2 TABLETS IN THE MORNING AND IN THE EVENING
     Route: 048
     Dates: start: 20080617
  4. PLAVIX [Concomitant]
     Indication: ACUTE MYOCARDIAL INFARCTION
     Dosage: ONE TABLET IN THE MORNING
     Route: 048
     Dates: start: 20080617
  5. HEPARIN [Concomitant]
     Indication: ACUTE MYOCARDIAL INFARCTION
     Route: 041
     Dates: start: 20080617, end: 20080627
  6. INDERAL [Concomitant]
     Indication: ACUTE MYOCARDIAL INFARCTION
     Route: 042
     Dates: start: 20080617, end: 20080617
  7. MIDAZOLAM HCL [Concomitant]
     Indication: SEDATION
     Dosage: 10 MG AND 1ML/H
     Route: 041
     Dates: start: 20080618, end: 20080623
  8. DIAZEPAM [Concomitant]
     Indication: SEDATION
     Route: 042
     Dates: start: 20080618, end: 20080618
  9. MIOBLOCK [Concomitant]
     Indication: SEDATION
     Route: 042
     Dates: start: 20080618, end: 20080618
  10. LIVALO [Concomitant]
     Indication: HYPERLIPIDAEMIA
     Route: 048
     Dates: start: 20080618, end: 20080618
  11. PREDOPA [Concomitant]
     Indication: BLOOD PRESSURE DECREASED
     Dosage: 2 TO 4 ML/HOUR
     Route: 041
     Dates: start: 20080618, end: 20080624
  12. SHINBIT [Concomitant]
     Indication: VENTRICULAR TACHYCARDIA
     Dosage: 1 MG/HOUR TO 12 ML/HOUR
     Route: 041
     Dates: start: 20080618, end: 20080627
  13. LASIX [Concomitant]
     Indication: CARDIAC FAILURE
     Route: 041
     Dates: start: 20080618, end: 20080621
  14. LASIX [Concomitant]
     Route: 041
     Dates: start: 20080621
  15. UNASYN [Concomitant]
     Indication: INFECTION PROPHYLAXIS
     Route: 041
     Dates: start: 20080618
  16. OMEPRAZOLE [Concomitant]
     Indication: GASTRIC ULCER
     Route: 042
     Dates: start: 20080618, end: 20080620
  17. HANP [Concomitant]
     Indication: CARDIOVASCULAR EVENT PROPHYLAXIS
     Dosage: DOSE UNKNOWN
     Route: 041
     Dates: start: 20080618, end: 20080624
  18. MYOCOR [Concomitant]
     Indication: CORONARY ARTERY DILATATION
     Dosage: DOSE UNKNOWN
     Route: 041
     Dates: start: 20080618, end: 20080618

REACTIONS (1)
  - HYPERTHERMIA MALIGNANT [None]
